FAERS Safety Report 17245532 (Version 1)
Quarter: 2020Q1

REPORT INFORMATION
  Report Type: Spontaneous
  Country: IT (occurrence: IT)
  Receive Date: 20200108
  Receipt Date: 20200108
  Transmission Date: 20200409
  Serious: Yes (Life-Threatening, Other)
  Sender: FDA-Public Use
  Company Number: IT-ACCORD-169131

PATIENT
  Age: 43 Year
  Sex: Male

DRUGS (2)
  1. CISPLATIN. [Suspect]
     Active Substance: CISPLATIN
     Indication: EXTRAGONADAL PRIMARY NON-SEMINOMA
  2. ETOPOSIDE. [Suspect]
     Active Substance: ETOPOSIDE
     Indication: EXTRAGONADAL PRIMARY NON-SEMINOMA

REACTIONS (4)
  - Extragonadal primary non-seminoma [Unknown]
  - Off label use [Unknown]
  - Toxicity to various agents [Unknown]
  - Condition aggravated [Unknown]
